FAERS Safety Report 9340074 (Version 1)
Quarter: 2013Q2

REPORT INFORMATION
  Report Type: Spontaneous
  Country: US (occurrence: None)
  Receive Date: 20130607
  Receipt Date: 20130607
  Transmission Date: 20140414
  Serious: No
  Sender: FDA-Public Use
  Company Number: None

PATIENT
  Age: 56 Year
  Sex: Female
  Weight: 77.11 kg

DRUGS (2)
  1. MONTELUKAST [Suspect]
     Indication: RHINITIS ALLERGIC
     Dosage: 1 DAILY PO
     Route: 048
     Dates: start: 20120801, end: 20130601
  2. MONTELUKAST [Suspect]
     Indication: ASTHMA
     Dosage: 1 DAILY PO
     Route: 048
     Dates: start: 20120801, end: 20130601

REACTIONS (2)
  - Drug effect decreased [None]
  - Product substitution issue [None]
